FAERS Safety Report 10187835 (Version 1)
Quarter: 2014Q2

REPORT INFORMATION
  Report Type: Spontaneous
  Country: US (occurrence: US)
  Receive Date: 20140522
  Receipt Date: 20140522
  Transmission Date: 20141212
  Serious: No
  Sender: FDA-Public Use
  Company Number: US-SANOFI-AVENTIS-2013SA091766

PATIENT
  Age: 62 Year
  Sex: Female

DRUGS (2)
  1. LANTUS [Suspect]
     Indication: BLOOD GLUCOSE ABNORMAL
     Dosage: DOSE - 20 TO 60 CC
     Route: 051
     Dates: start: 20130817
  2. ALL OTHER THERAPEUTIC PRODUCTS [Concomitant]

REACTIONS (2)
  - Weight increased [Unknown]
  - Blood glucose increased [Not Recovered/Not Resolved]
